FAERS Safety Report 21040924 (Version 1)
Quarter: 2022Q3

REPORT INFORMATION
  Report Type: Spontaneous
  Country: IT (occurrence: IT)
  Receive Date: 20220704
  Receipt Date: 20220704
  Transmission Date: 20221027
  Serious: Yes (Other)
  Sender: FDA-Public Use
  Company Number: IT-NOVARTISPH-NVSC2022IT151720

PATIENT
  Age: 20 Year
  Sex: Male

DRUGS (6)
  1. CYCLOSPORINE [Suspect]
     Active Substance: CYCLOSPORINE
     Indication: Heart transplant
     Dosage: UNK
     Route: 065
  2. CYCLOSPORINE [Suspect]
     Active Substance: CYCLOSPORINE
     Indication: Immunosuppressant drug therapy
  3. AZATHIOPRINE [Suspect]
     Active Substance: AZATHIOPRINE
     Indication: Heart transplant
     Dosage: UNK
     Route: 065
  4. AZATHIOPRINE [Suspect]
     Active Substance: AZATHIOPRINE
     Indication: Immunosuppressant drug therapy
  5. ELBASVIR [Concomitant]
     Active Substance: ELBASVIR
     Indication: Hepatitis C
     Dosage: UNK
     Route: 065
  6. GRAZOPREVIR [Concomitant]
     Active Substance: GRAZOPREVIR
     Indication: Hepatitis C
     Dosage: UNK
     Route: 065

REACTIONS (6)
  - Plasma cell myeloma [Unknown]
  - Basal cell carcinoma [Unknown]
  - Chronic kidney disease [Unknown]
  - Heart transplant rejection [Unknown]
  - Dyslipidaemia [Unknown]
  - Fungal infection [Unknown]
